FAERS Safety Report 4804528-1 (Version None)
Quarter: 2005Q4

REPORT INFORMATION
  Report Type: 
  Country: None (occurrence: None)
  Receive Date: 20051017
  Receipt Date: 20051009
  Transmission Date: 20060501
  Serious: Yes (Hospitalization)
  Sender: FDA-Public Use
  Company Number: HQWYE950910OCT05

PATIENT
  Age: 29 Year

DRUGS (8)
  1. CYCLOSPORINE [Suspect]
     Indication: PROPHYLAXIS AGAINST TRANSPLANT REJECTION
     Dosage: SEE IMAGE
     Route: 048
     Dates: start: 20050922, end: 20050927
  2. CYCLOSPORINE [Suspect]
     Indication: PROPHYLAXIS AGAINST TRANSPLANT REJECTION
     Dosage: SEE IMAGE
     Route: 048
     Dates: start: 20050928
  3. METHYLPRDNISOLONE (METHYLPREDNISOLONE) [Concomitant]
  4. MYCOPHENOLATE MOFETIL (MYCOPHENOLATE MOFETIL) [Concomitant]
  5. REVIPARIN SODIUM (HEPARIN-FRACTION, SODIUM SALT) [Concomitant]
  6. BROMAZEPAM (BROMAZEPAM) [Concomitant]
  7. OMEPRAZOLE [Concomitant]
  8. AMOXICILLIN [Concomitant]

REACTIONS (3)
  - COMPLICATIONS OF TRANSPLANTED KIDNEY [None]
  - GRAFT DYSFUNCTION [None]
  - THERAPEUTIC AGENT TOXICITY [None]
